FAERS Safety Report 18940671 (Version 1)
Quarter: 2021Q1

REPORT INFORMATION
  Report Type: Spontaneous
  Country: PL (occurrence: PL)
  Receive Date: 20210225
  Receipt Date: 20210225
  Transmission Date: 20210420
  Serious: Yes (Death, Hospitalization, Other)
  Sender: FDA-Public Use
  Company Number: PL-ALXN-A202102444

PATIENT
  Age: 58 Year
  Sex: Male
  Weight: 83 kg

DRUGS (1)
  1. SOLIRIS [Suspect]
     Active Substance: ECULIZUMAB
     Indication: ATYPICAL HAEMOLYTIC URAEMIC SYNDROME
     Dosage: 1200 MG, Q2W
     Route: 042
     Dates: start: 202008, end: 20210128

REACTIONS (3)
  - COVID-19 pneumonia [Fatal]
  - SARS-CoV-2 test positive [Unknown]
  - Autoimmune disorder [Unknown]

NARRATIVE: CASE EVENT DATE: 20210118
